FAERS Safety Report 9804508 (Version 1)
Quarter: 2014Q1

REPORT INFORMATION
  Report Type: Spontaneous
  Country: IT (occurrence: IT)
  Receive Date: 20140108
  Receipt Date: 20140108
  Transmission Date: 20141002
  Serious: Yes (Other)
  Sender: FDA-Public Use
  Company Number: IT-GLAXOSMITHKLINE-B0958121A

PATIENT
  Age: 23 Year
  Sex: Female

DRUGS (2)
  1. DUAC [Suspect]
     Indication: ACNE
     Route: 061
     Dates: start: 20131129
  2. HORMONAL THERAPY [Concomitant]

REACTIONS (3)
  - Pruritus [Recovering/Resolving]
  - Erythema [Unknown]
  - Oedema [Unknown]
